FAERS Safety Report 8504343-1 (Version None)
Quarter: 2012Q3

REPORT INFORMATION
  Report Type: 
  Country: None (occurrence: None)
  Receive Date: 20120711
  Receipt Date: 20120706
  Transmission Date: 20120928
  Serious: Yes (Other)
  Sender: FDA-Public Use
  Company Number: PHHY2012IE058186

PATIENT
  Age: 54 Year
  Sex: Male

DRUGS (6)
  1. EFALIZUMAB [Suspect]
     Dosage: 1.3 ML, QW
     Dates: start: 20080401, end: 20090301
  2. FUMARIC ACID [Concomitant]
  3. PSORALENS PLUS ULTRAVIOLET [Concomitant]
     Indication: PSORIATIC ARTHROPATHY
  4. ADALIMUMAB [Suspect]
     Dosage: 50 MG, QW
     Dates: start: 20090301, end: 20100301
  5. METHOTREXATE [Suspect]
     Indication: PSORIASIS
  6. ESTERS [Concomitant]

REACTIONS (3)
  - NODULE [None]
  - HAEMORRHAGE [None]
  - MALIGNANT MELANOMA [None]
